FAERS Safety Report 14430630 (Version 1)
Quarter: 2018Q1

REPORT INFORMATION
  Report Type: Spontaneous
  Country: US (occurrence: US)
  Receive Date: 20180123
  Receipt Date: 20180123
  Transmission Date: 20180509
  Serious: Yes (Other)
  Sender: FDA-Public Use
  Company Number: None

PATIENT
  Age: 69 Year
  Sex: Male
  Weight: 98 kg

DRUGS (6)
  1. ROLAPITANT [Suspect]
     Active Substance: ROLAPITANT
     Indication: PROPHYLAXIS OF NAUSEA AND VOMITING
     Dosage: ?          OTHER FREQUENCY:ONCE BEFORE CHEMO;?
     Route: 042
     Dates: start: 20180111, end: 20180111
  2. PEMETREXED. [Concomitant]
     Active Substance: PEMETREXED
  3. ROLAPITANT [Suspect]
     Active Substance: ROLAPITANT
     Indication: LUNG NEOPLASM MALIGNANT
     Dosage: ?          OTHER FREQUENCY:ONCE BEFORE CHEMO;?
     Route: 042
     Dates: start: 20180111, end: 20180111
  4. DEXAMETHASONE. [Concomitant]
     Active Substance: DEXAMETHASONE
  5. PALONOSETRON. [Concomitant]
     Active Substance: PALONOSETRON HYDROCHLORIDE
  6. CARBOPLATIN. [Concomitant]
     Active Substance: CARBOPLATIN

REACTIONS (6)
  - Hypersensitivity [None]
  - Infusion related reaction [None]
  - Flushing [None]
  - Dyspnoea [None]
  - Abdominal discomfort [None]
  - Chest pain [None]

NARRATIVE: CASE EVENT DATE: 20180111
